FAERS Safety Report 18315322 (Version 1)
Quarter: 2020Q3

REPORT INFORMATION
  Report Type: Spontaneous
  Country: SE (occurrence: SE)
  Receive Date: 20200926
  Receipt Date: 20200926
  Transmission Date: 20201103
  Serious: Yes (Other)
  Sender: FDA-Public Use
  Company Number: SE-TEVA-2020-SE-1830667

PATIENT
  Age: 39 Year
  Sex: Female
  Weight: 112 kg

DRUGS (8)
  1. VENLAFAXINE [Suspect]
     Active Substance: VENLAFAXINE HYDROCHLORIDE
     Indication: BURNOUT SYNDROME
     Dosage: 225 MILLIGRAM DAILY; DEPOT TABLETS
     Dates: start: 2005
  2. LOSARTAN. [Concomitant]
     Active Substance: LOSARTAN
     Dates: start: 2015
  3. VOXRA [Concomitant]
     Active Substance: BUPROPION HYDROCHLORIDE
     Dates: start: 20200716
  4. BEVIPLEX COMP [Concomitant]
     Dates: start: 2016
  5. FEMASEKVENS [Concomitant]
     Active Substance: ESTRADIOL\NORETHINDRONE ACETATE
     Dates: start: 2015
  6. AMLODIPINE [Concomitant]
     Active Substance: AMLODIPINE BESYLATE
     Dates: start: 2016
  7. DIVISUN [Concomitant]
     Active Substance: CHOLECALCIFEROL
     Dates: start: 2016
  8. AMITRIPTYLINE [Concomitant]
     Active Substance: AMITRIPTYLINE
     Dosage: 50 AND 20 MILLIGRAMS
     Dates: start: 2018

REACTIONS (12)
  - Hypertension [Not Recovered/Not Resolved]
  - Tearfulness [Not Recovered/Not Resolved]
  - Taste disorder [Not Recovered/Not Resolved]
  - Accommodation disorder [Not Recovered/Not Resolved]
  - Loss of libido [Not Recovered/Not Resolved]
  - Female orgasmic disorder [Not Recovered/Not Resolved]
  - Weight increased [Not Recovered/Not Resolved]
  - Diarrhoea [Not Recovered/Not Resolved]
  - Dry mouth [Not Recovered/Not Resolved]
  - Withdrawal syndrome [Not Recovered/Not Resolved]
  - Vision blurred [Not Recovered/Not Resolved]
  - Headache [Not Recovered/Not Resolved]

NARRATIVE: CASE EVENT DATE: 2005
